FAERS Safety Report 8288468-4 (Version None)
Quarter: 2012Q2

REPORT INFORMATION
  Report Type: 
  Country: None (occurrence: None)
  Receive Date: 20120416
  Receipt Date: 20120404
  Transmission Date: 20120825
  Serious: Yes (Hospitalization)
  Sender: FDA-Public Use
  Company Number: CA-ROCHE-1052561

PATIENT
  Sex: Female
  Weight: 59.02 kg

DRUGS (1)
  1. ACTEMRA [Suspect]
     Indication: RHEUMATOID ARTHRITIS
     Route: 042
     Dates: start: 20111101, end: 20120213

REACTIONS (4)
  - HYPERTENSION [None]
  - SYSTEMIC LUPUS ERYTHEMATOSUS [None]
  - BRONCHITIS [None]
  - ASTHMA [None]
